FAERS Safety Report 12771913 (Version 1)
Quarter: 2016Q3

REPORT INFORMATION
  Report Type: Spontaneous
  Country: GB (occurrence: GB)
  Receive Date: 20160922
  Receipt Date: 20160922
  Transmission Date: 20161109
  Serious: Yes (Disabling)
  Sender: FDA-Public Use
  Company Number: GB-TEVA-693319ACC

PATIENT
  Age: 72 Year
  Sex: Female
  Weight: 57 kg

DRUGS (13)
  1. FUROSEMIDE. [Concomitant]
     Active Substance: FUROSEMIDE
     Dosage: 1 DOSAGE FORMS DAILY; AS PER CARDIOLOGY
     Dates: start: 20160524, end: 20160613
  2. IVABRADINE [Concomitant]
     Active Substance: IVABRADINE
     Dosage: 1 DOSAGE FORMS DAILY;
     Dates: start: 20160607
  3. FLUCONAZOLE. [Concomitant]
     Active Substance: FLUCONAZOLE
     Dosage: 1 DOSAGE FORMS DAILY;
     Dates: start: 20160711, end: 20160718
  4. AMOXICILLIN. [Concomitant]
     Active Substance: AMOXICILLIN
     Dosage: 3 DOSAGE FORMS DAILY;
     Dates: start: 20160620, end: 20160627
  5. NIQUITIN [Concomitant]
     Active Substance: NICOTINE
     Dosage: 1 DOSAGE FORMS DAILY;
     Dates: start: 20160823
  6. DAKTACORT [Concomitant]
     Active Substance: HYDROCORTISONE\MICONAZOLE NITRATE
     Dosage: 2 DOSAGE FORMS DAILY;
     Dates: start: 20160809, end: 20160823
  7. SPIRONOLACTONE. [Suspect]
     Active Substance: SPIRONOLACTONE
     Dates: start: 20160901
  8. CARVEDILOL. [Concomitant]
     Active Substance: CARVEDILOL
     Dosage: 1 DOSAGE FORMS DAILY;
     Dates: start: 20160524, end: 20160613
  9. SALBUTAMOL [Concomitant]
     Active Substance: ALBUTEROL
     Dates: start: 20160524
  10. CAPOTEN [Concomitant]
     Active Substance: CAPTOPRIL
     Dosage: 4 DOSAGE FORMS DAILY;
     Dates: start: 20160524
  11. GLICLAZIDE [Concomitant]
     Active Substance: GLICLAZIDE
     Dosage: 2 DOSAGE FORMS DAILY; IN THE MORNING
     Dates: start: 20160524
  12. BUMETANIDE. [Concomitant]
     Active Substance: BUMETANIDE
     Dosage: 3 IN MORNING AND 2 AT MIDDAY
     Dates: start: 20160711
  13. HUMULIN M3 [Concomitant]
     Active Substance: INSULIN HUMAN
     Dosage: USE AS DIRECTED
     Dates: start: 20160524

REACTIONS (2)
  - Candida infection [Unknown]
  - Mouth ulceration [Recovering/Resolving]

NARRATIVE: CASE EVENT DATE: 20160901
